FAERS Safety Report 8341565-7 (Version None)
Quarter: 2012Q2

REPORT INFORMATION
  Report Type: 
  Country: None (occurrence: None)
  Receive Date: 20120507
  Receipt Date: 20120426
  Transmission Date: 20120825
  Serious: Yes (Hospitalization)
  Sender: FDA-Public Use
  Company Number: US-ASTRAZENECA-2011SE22175

PATIENT
  Age: 88 Year
  Sex: Female

DRUGS (3)
  1. PEPCID AC [Concomitant]
  2. NEXIUM [Suspect]
     Dosage: TWO CAPSULES
     Route: 048
  3. NEXIUM [Suspect]
     Route: 048

REACTIONS (6)
  - DYSPEPSIA [None]
  - BACK INJURY [None]
  - GASTRIC DISORDER [None]
  - HIATUS HERNIA [None]
  - OFF LABEL USE [None]
  - INTENTIONAL DRUG MISUSE [None]
